FAERS Safety Report 9905468 (Version 3)
Quarter: 2014Q2

REPORT INFORMATION
  Report Type: Report from Study
  Country: RU (occurrence: RU)
  Receive Date: 20140218
  Receipt Date: 20140429
  Transmission Date: 20141212
  Serious: Yes (Death, Life-Threatening, Hospitalization)
  Sender: FDA-Public Use
  Company Number: RU-TEVA-462799ISR

PATIENT
  Age: 56 Year
  Sex: Male

DRUGS (12)
  1. 5FU FLUOROURACIL [Suspect]
     Indication: METASTATIC GASTRIC CANCER
     Dosage: CURRENT CYCLE 1. LAST ADMINISTRATION PRIOR TO THROMBOCYTOPENIA 13-FEB-2014
     Route: 041
     Dates: start: 20130208, end: 20130310
  2. CDDP CISPLATIN [Suspect]
     Indication: METASTATIC GASTRIC CANCER
     Dosage: CURRENT CYCLE 2. LAST ADMINISTRATION PRIOR TO THROMBOCYTOPENIA 08-FEB-2014
     Route: 041
     Dates: start: 20130208, end: 20130307
  3. RABEPRAZOLE [Concomitant]
     Indication: HAEMORRHAGE PROPHYLAXIS
     Dates: start: 20130122, end: 20130310
  4. FRAXIPARINE [Concomitant]
     Indication: DEEP VEIN THROMBOSIS
     Dates: start: 20130131, end: 20130310
  5. NADROPARIN [Concomitant]
     Indication: THROMBOSIS
     Dates: start: 20130131, end: 20130310
  6. NITROXOLINE [Concomitant]
     Indication: PROPHYLAXIS URINARY TRACT INFECTION
     Dates: start: 20130207, end: 20130210
  7. NITROXOLINE [Concomitant]
     Dates: start: 20130207, end: 20130212
  8. DEXAMETHASONE [Concomitant]
     Indication: PREMEDICATION
     Dates: start: 20130208, end: 20130211
  9. ONDANSETRON [Concomitant]
     Indication: PREMEDICATION
     Dates: start: 20130208, end: 20130208
  10. APREPITANT [Concomitant]
     Indication: PREMEDICATION
     Dates: start: 20130208, end: 20130210
  11. BENZYDAMINE [Concomitant]
     Indication: STOMATITIS
     Dates: start: 20130215, end: 20130221
  12. FILGRASTIM [Concomitant]
     Indication: NEUTROPENIA
     Dates: start: 20130313, end: 20130315

REACTIONS (4)
  - Gastric cancer [Fatal]
  - Thrombocytopenia [Recovered/Resolved]
  - Anaemia [Not Recovered/Not Resolved]
  - Gastric haemorrhage [Recovered/Resolved]
